FAERS Safety Report 5889155-X (Version None)
Quarter: 2008Q3

REPORT INFORMATION
  Report Type: 
  Country: None (occurrence: None)
  Receive Date: 20080919
  Receipt Date: 20080911
  Transmission Date: 20090109
  Serious: Yes (Other)
  Sender: FDA-Public Use
  Company Number: BE-BAYER-200826400GPV

PATIENT
  Sex: Male

DRUGS (3)
  1. AVELOX [Suspect]
     Indication: BRONCHITIS
     Route: 065
     Dates: end: 20080817
  2. ULTRACORTENOL [Concomitant]
     Indication: IRIDOCYCLITIS
  3. HOMATROPINE [Concomitant]
     Indication: IRIDOCYCLITIS

REACTIONS (5)
  - EYE PAIN [None]
  - HEADACHE [None]
  - ILL-DEFINED DISORDER [None]
  - IRIDOCYCLITIS [None]
  - OCULAR HYPERAEMIA [None]
